FAERS Safety Report 8618645-1 (Version None)
Quarter: 2012Q3

REPORT INFORMATION
  Report Type: 
  Country: None (occurrence: None)
  Receive Date: 20120814
  Receipt Date: 20120814
  Transmission Date: 20120928
  Serious: No
  Sender: FDA-Public Use
  Company Number: None

PATIENT
  Sex: Male
  Weight: 15.4223 kg

DRUGS (2)
  1. SINGULAIR [Suspect]
     Indication: MOOD SWINGS
     Dosage: 1 PACKET ONCE A DAY PO
     Route: 048
     Dates: start: 20120510, end: 20120801
  2. SINGULAIR [Suspect]
     Indication: SLEEP TERROR
     Dosage: 1 PACKET ONCE A DAY PO
     Route: 048
     Dates: start: 20120510, end: 20120801

REACTIONS (2)
  - MOOD SWINGS [None]
  - SCREAMING [None]
